FAERS Safety Report 9519567 (Version 2)
Quarter: 2013Q4

REPORT INFORMATION
  Report Type: Spontaneous
  Country: GB (occurrence: GB)
  Receive Date: 20130912
  Receipt Date: 20131204
  Transmission Date: 20140711
  Serious: Yes (Other)
  Sender: FDA-Public Use
  Company Number: PHHY2013GB097517

PATIENT
  Age: 79 Year
  Sex: Male
  Weight: 87.8 kg

DRUGS (18)
  1. AMLODIPINE [Suspect]
     Indication: CARDIAC FAILURE
     Dosage: 5 MG, QD
     Route: 048
     Dates: start: 200603
  2. AMLODIPINE [Suspect]
     Indication: CARDIAC FAILURE
  3. IMDUR [Concomitant]
  4. SIMVASTATIN [Concomitant]
  5. NASONEX [Concomitant]
  6. PARACETAMOL [Concomitant]
  7. DESLORATADINE [Concomitant]
  8. ALENDRONIC ACID [Concomitant]
     Dates: start: 200703
  9. ADCAL-D3 [Concomitant]
  10. CANDESARTAN [Concomitant]
  11. OMEPRAZOLE [Concomitant]
  12. NICORANDIL [Concomitant]
  13. ATENOLOL [Concomitant]
  14. MOVICOL [Concomitant]
  15. ASPIRIN [Concomitant]
  16. PREDNISOLONE [Concomitant]
  17. OILATUM [Concomitant]
  18. E.45 [Concomitant]

REACTIONS (5)
  - Rhinitis allergic [Not Recovered/Not Resolved]
  - Extrapyramidal disorder [Not Recovered/Not Resolved]
  - Condition aggravated [Unknown]
  - Constipation [Not Recovered/Not Resolved]
  - Cough [Not Recovered/Not Resolved]
